FAERS Safety Report 5341633-8 (Version None)
Quarter: 2007Q2

REPORT INFORMATION
  Report Type: 
  Country: None (occurrence: None)
  Receive Date: 20070530
  Receipt Date: 20070518
  Transmission Date: 20071010
  Serious: Yes (Hospitalization)
  Sender: FDA-Public Use
  Company Number: 2007AL002043

PATIENT
  Age: 77 Year
  Sex: Female

DRUGS (1)
  1. CARBAMAZEPINE [Suspect]
     Indication: EPILEPSY
     Dosage: 400 MG; QD

REACTIONS (7)
  - ACANTHOSIS [None]
  - ASTHENIA [None]
  - CUTANEOUS LUPUS ERYTHEMATOSUS [None]
  - GAMMA-GLUTAMYLTRANSFERASE INCREASED [None]
  - HYPERKERATOSIS [None]
  - LUPUS-LIKE SYNDROME [None]
  - MYALGIA [None]
